FAERS Safety Report 14898734 (Version 7)
Quarter: 2020Q1

REPORT INFORMATION
  Report Type: Spontaneous
  Country: US (occurrence: US)
  Receive Date: 20180515
  Receipt Date: 20200213
  Transmission Date: 20200409
  Serious: No
  Sender: FDA-Public Use
  Company Number: US-ACTELION-A-US2018-171202

PATIENT
  Age: 74 Year
  Sex: Female
  Weight: 73.02 kg

DRUGS (7)
  1. XARELTO [Suspect]
     Active Substance: RIVAROXABAN
     Indication: PRODUCT USED FOR UNKNOWN INDICATION
     Route: 048
  2. OXYGEN. [Suspect]
     Active Substance: OXYGEN
     Indication: PRODUCT USED FOR UNKNOWN INDICATION
     Route: 065
  3. TREPROSTINIL SODIUM [Concomitant]
     Active Substance: TREPROSTINIL SODIUM
  4. OFEV [Concomitant]
     Active Substance: NINTEDANIB
  5. IRON [Concomitant]
     Active Substance: IRON
  6. ADEMPAS [Concomitant]
     Active Substance: RIOCIGUAT
     Indication: PRODUCT USED FOR UNKNOWN INDICATION
     Dosage: 1 MG, UNK
     Route: 065
  7. OPSUMIT [Suspect]
     Active Substance: MACITENTAN
     Indication: PULMONARY ARTERIAL HYPERTENSION
     Dosage: 10 MG, QD
     Route: 048
     Dates: start: 20180330

REACTIONS (12)
  - Muscle spasms [Unknown]
  - Dyspnoea [Unknown]
  - Pruritus [Unknown]
  - Dry skin [Unknown]
  - Alopecia [Unknown]
  - Epistaxis [Unknown]
  - Vomiting [Unknown]
  - Dizziness [Unknown]
  - Nasal discomfort [Unknown]
  - Dyspnoea exertional [Unknown]
  - Skin exfoliation [Unknown]
  - Oxygen therapy [Unknown]

NARRATIVE: CASE EVENT DATE: 20180410
